FAERS Safety Report 22218106 (Version 2)
Quarter: 2023Q2

REPORT INFORMATION
  Report Type: Spontaneous
  Country: US (occurrence: US)
  Receive Date: 20230417
  Receipt Date: 20230607
  Transmission Date: 20230722
  Serious: No
  Sender: FDA-Public Use
  Company Number: US-BAYER-2023A050291

PATIENT
  Age: 68 Year
  Sex: Female

DRUGS (2)
  1. MIRALAX [Suspect]
     Active Substance: POLYETHYLENE GLYCOL 3350
     Dosage: 17 G, QD
     Route: 048
     Dates: start: 202304, end: 20230411
  2. ANTIDIARRHEAL C.S. [Concomitant]

REACTIONS (3)
  - Gastrointestinal disorder [Recovered/Resolved]
  - Product label issue [None]
  - Product container issue [None]

NARRATIVE: CASE EVENT DATE: 20230412
